FAERS Safety Report 11167092 (Version 1)
Quarter: 2015Q2

REPORT INFORMATION
  Report Type: Report from Study
  Country: NL (occurrence: NL)
  Receive Date: 20150605
  Receipt Date: 20150605
  Transmission Date: 20150821
  Serious: Yes (Hospitalization)
  Sender: FDA-Public Use
  Company Number: NL-ROCHE-1573749

PATIENT
  Age: 71 Year
  Sex: Male

DRUGS (5)
  1. PEGINTERFERON ALFA-2B [Suspect]
     Active Substance: PEGINTERFERON ALFA-2B
     Indication: MANTLE CELL LYMPHOMA
     Route: 065
     Dates: start: 20100329
  2. XALATAN [Concomitant]
     Active Substance: LATANOPROST
     Indication: MANTLE CELL LYMPHOMA
     Route: 065
  3. SIMVASTATIN. [Concomitant]
     Active Substance: SIMVASTATIN
     Indication: MANTLE CELL LYMPHOMA
     Route: 065
  4. RITUXIMAB [Suspect]
     Active Substance: RITUXIMAB
     Indication: MANTLE CELL LYMPHOMA
     Route: 042
  5. PCM (PARACETAMOL) [Concomitant]

REACTIONS (2)
  - Pyrexia [Recovered/Resolved]
  - Circulatory collapse [Recovered/Resolved]

NARRATIVE: CASE EVENT DATE: 20100404
